FAERS Safety Report 21740401 (Version 1)
Quarter: 2022Q4

REPORT INFORMATION
  Report Type: Spontaneous
  Country: US (occurrence: None)
  Receive Date: 20221216
  Receipt Date: 20221216
  Transmission Date: 20230113
  Serious: No
  Sender: FDA-Public Use
  Company Number: None

PATIENT
  Age: 39 Year
  Sex: Female
  Weight: 83.25 kg

DRUGS (4)
  1. OCREVUS [Suspect]
     Active Substance: OCRELIZUMAB
     Indication: Multiple sclerosis
     Route: 042
  2. Acetaminophen 500MG Oral [Concomitant]
  3. Diphenhydramine 25MG Oral [Concomitant]
  4. Methylprednisolone 125MG IV [Concomitant]

REACTIONS (9)
  - Infusion related reaction [None]
  - Swollen tongue [None]
  - Tongue discomfort [None]
  - Tongue pruritus [None]
  - Feeling abnormal [None]
  - Fatigue [None]
  - Burning sensation [None]
  - Paraesthesia [None]
  - Flushing [None]

NARRATIVE: CASE EVENT DATE: 20221207
